FAERS Safety Report 24355165 (Version 2)
Quarter: 2024Q4

REPORT INFORMATION
  Report Type: Report from Study
  Country: AT (occurrence: AT)
  Receive Date: 20240924
  Receipt Date: 20241112
  Transmission Date: 20250115
  Serious: Yes (Other)
  Sender: TAKEDA
  Company Number: AT-TAKEDA-2024TUS093667

PATIENT
  Age: 32 Year
  Sex: Female

DRUGS (5)
  1. VEDOLIZUMAB [Suspect]
     Active Substance: VEDOLIZUMAB
     Indication: Colitis ulcerative
     Dosage: 300 MILLIGRAM
  2. VEDOLIZUMAB [Suspect]
     Active Substance: VEDOLIZUMAB
     Indication: Colitis ulcerative
     Dosage: 108 MILLIGRAM, Q2WEEKS
     Dates: start: 20240122
  3. VEDOLIZUMAB [Suspect]
     Active Substance: VEDOLIZUMAB
  4. Salofalk [Concomitant]
     Indication: Inflammation
     Dosage: 500 MILLIGRAM, QD
     Dates: start: 202410
  5. MESALAMINE [Concomitant]
     Active Substance: MESALAMINE
     Indication: Inflammation
     Dosage: 1000 MILLIGRAM, QD
     Dates: start: 202410

REACTIONS (2)
  - Diarrhoea haemorrhagic [Recovered/Resolved]
  - Faecal calprotectin increased [Recovered/Resolved]

NARRATIVE: CASE EVENT DATE: 20240801
